FAERS Safety Report 23572870 (Version 1)
Quarter: 2024Q1

REPORT INFORMATION
  Report Type: Spontaneous
  Country: KR (occurrence: KR)
  Receive Date: 20240227
  Receipt Date: 20240227
  Transmission Date: 20240410
  Serious: Yes (Other)
  Sender: FDA-Public Use
  Company Number: KR-009507513-2402KOR006798

PATIENT
  Sex: Female

DRUGS (3)
  1. KEYTRUDA [Suspect]
     Active Substance: PEMBROLIZUMAB
     Dosage: 200 MILLIGRAM, ONCE/ FORMULATION: VIAL
     Route: 042
     Dates: start: 20230111, end: 20230111
  2. CARBOPLATIN [Suspect]
     Active Substance: CARBOPLATIN
     Dosage: 419.8 MILLIGRAM, ONCE/ FORMULATION: VIAL
     Route: 042
     Dates: start: 20230111, end: 20230111
  3. PACLITAXEL [Suspect]
     Active Substance: PACLITAXEL
     Dosage: 109.6 MILLIGRAM, ONCE/ FORMULATION: VIAL
     Route: 042
     Dates: start: 20230111, end: 20230118

REACTIONS (1)
  - Leukopenia [Recovering/Resolving]

NARRATIVE: CASE EVENT DATE: 20230125
